FAERS Safety Report 8573262-7 (Version None)
Quarter: 2012Q3

REPORT INFORMATION
  Report Type: 
  Country: None (occurrence: None)
  Receive Date: 20120806
  Receipt Date: 20120730
  Transmission Date: 20120928
  Serious: Yes (Hospitalization, Other)
  Sender: FDA-Public Use
  Company Number: BR-ROCHE-756639

PATIENT
  Sex: Female
  Weight: 71 kg

DRUGS (7)
  1. MABTHERA [Suspect]
     Route: 042
  2. MABTHERA [Suspect]
     Dosage: DOSE REPORTED AS: MG/ML
     Route: 042
  3. MABTHERA [Suspect]
     Indication: RHEUMATOID ARTHRITIS
     Dosage: DOSE: 1000 MG/ML; FORM: INFUSION
     Route: 042
     Dates: start: 20090801, end: 20090825
  4. TENOXICAM AND TENOXICAM [Suspect]
     Indication: PRODUCT USED FOR UNKNOWN INDICATION
  5. METHOTREXATE [Concomitant]
     Dosage: DRUG REPORTED AS TECNOMET
  6. OMEPRAZOLE [Concomitant]
  7. FOLIC ACID [Concomitant]

REACTIONS (9)
  - UNEVALUABLE EVENT [None]
  - HYPOTHYROIDISM [None]
  - NASAL SEPTUM DEVIATION [None]
  - DRUG INEFFECTIVE [None]
  - RED BLOOD CELL SEDIMENTATION RATE ABNORMAL [None]
  - THYROID NEOPLASM [None]
  - NASOPHARYNGITIS [None]
  - HYPERSENSITIVITY [None]
  - NAUSEA [None]
